FAERS Safety Report 10053511 (Version 2)
Quarter: 2014Q2

REPORT INFORMATION
  Report Type: Spontaneous
  Country: CN (occurrence: CN)
  Receive Date: 20140402
  Receipt Date: 20140408
  Transmission Date: 20141212
  Serious: Yes (Other)
  Sender: FDA-Public Use
  Company Number: CN-PFIZER INC-2014089383

PATIENT
  Age: 23 Year
  Sex: Female

DRUGS (5)
  1. METHYLPREDNISOLONE [Suspect]
     Indication: APLASTIC ANAEMIA
     Dosage: 1.0 G, 1X/DAY
     Route: 041
     Dates: start: 1995, end: 1995
  2. METHYLPREDNISOLONE [Suspect]
     Dosage: 0.4 G, 1X/DAY
     Route: 041
     Dates: start: 1995, end: 1995
  3. METHYLPREDNISOLONE [Suspect]
     Dosage: 0.2 G, 1X/DAY
     Route: 041
     Dates: start: 1995, end: 1995
  4. METHYLPREDNISOLONE [Suspect]
     Dosage: 80 MG, 1X/DAY
     Route: 041
     Dates: start: 1995, end: 1995
  5. METHYLPREDNISOLONE [Suspect]
     Dosage: 40 MG, 1X/DAY
     Route: 041
     Dates: start: 1995, end: 1995

REACTIONS (1)
  - Hypocalcaemic seizure [Recovered/Resolved]
